FAERS Safety Report 5330731-0 (Version None)
Quarter: 2007Q2

REPORT INFORMATION
  Report Type: 
  Country: None (occurrence: None)
  Receive Date: 20070518
  Receipt Date: 20070518
  Transmission Date: 20071010
  Serious: Yes (Hospitalization)
  Sender: FDA-Public Use
  Company Number: None

PATIENT
  Sex: Male

DRUGS (2)
  1. AGGRENOX [Suspect]
     Indication: CEREBROVASCULAR ACCIDENT
     Dosage: 1 TAB X2/DAY PO
     Route: 048
     Dates: start: 20070307, end: 20070308
  2. AGGRENOX [Suspect]
     Indication: TRANSIENT ISCHAEMIC ATTACK
     Dosage: 1 TAB X2/DAY PO
     Route: 048
     Dates: start: 20070307, end: 20070308

REACTIONS (2)
  - CONFUSIONAL STATE [None]
  - SOMNOLENCE [None]
